FAERS Safety Report 25969273 (Version 3)
Quarter: 2025Q4

REPORT INFORMATION
  Report Type: Spontaneous
  Country: US (occurrence: US)
  Receive Date: 20251028
  Receipt Date: 20251201
  Transmission Date: 20260117
  Serious: No
  Sender: PFIZER
  Company Number: US-PFIZER INC-202500210693

PATIENT
  Age: 16 Year
  Sex: Male
  Weight: 63.5 kg

DRUGS (1)
  1. GENOTROPIN [Suspect]
     Active Substance: SOMATROPIN
     Dosage: 2.4 MG, DAILY

REACTIONS (3)
  - Device power source issue [Unknown]
  - Device information output issue [Unknown]
  - Drug dose omission by device [Unknown]
